FAERS Safety Report 7524898-3 (Version None)
Quarter: 2011Q2

REPORT INFORMATION
  Report Type: 
  Country: None (occurrence: None)
  Receive Date: 20110526
  Receipt Date: 20110516
  Transmission Date: 20111010
  Serious: Yes (Hospitalization)
  Sender: FDA-Public Use
  Company Number: 2011SP001609

PATIENT
  Age: 31 Year
  Sex: Female

DRUGS (3)
  1. GEODON [Concomitant]
  2. TEGRETOL [Suspect]
  3. LATUDA [Suspect]
     Dosage: 40 MG; BID; ORAL
     Route: 048
     Dates: start: 20110101, end: 20110516

REACTIONS (1)
  - PSYCHOTIC DISORDER [None]
